FAERS Safety Report 23432392 (Version 1)
Quarter: 2024Q1

REPORT INFORMATION
  Report Type: Spontaneous
  Country: US (occurrence: None)
  Receive Date: 20240122
  Receipt Date: 20240122
  Transmission Date: 20240410
  Serious: Yes (Hospitalization)
  Sender: FDA-Public Use
  Company Number: None

PATIENT
  Age: 17 Year
  Sex: Female

DRUGS (1)
  1. RINVOQ [Suspect]
     Active Substance: UPADACITINIB
     Indication: Dermatitis atopic
     Dosage: 30MG QD

REACTIONS (7)
  - Skin fissures [None]
  - Skin exfoliation [None]
  - Dry skin [None]
  - Skin weeping [None]
  - Skin haemorrhage [None]
  - Sleep disorder [None]
  - Pruritus [None]
